FAERS Safety Report 9103188 (Version 1)
Quarter: 2013Q1

REPORT INFORMATION
  Report Type: Spontaneous
  Country: US (occurrence: US)
  Receive Date: 20130219
  Receipt Date: 20130219
  Transmission Date: 20140127
  Serious: No
  Sender: FDA-Public Use
  Company Number: US-BAYER-2013-020246

PATIENT
  Sex: 0

DRUGS (3)
  1. BETASERON [Suspect]
  2. GILENYA [Suspect]
  3. REBIF [Suspect]

REACTIONS (1)
  - Adverse drug reaction [None]
